FAERS Safety Report 4550477-6 (Version None)
Quarter: 2005Q1

REPORT INFORMATION
  Report Type: 
  Country: None (occurrence: None)
  Receive Date: 20050110
  Receipt Date: 20041230
  Transmission Date: 20050727
  Serious: Yes (Hospitalization, Other)
  Sender: FDA-Public Use
  Company Number: 2004-05422

PATIENT
  Age: 66 Year
  Sex: Female
  Weight: 81.6 kg

DRUGS (2)
  1. OXYTROL [Suspect]
     Indication: HYPERTONIC BLADDER
     Dosage: 1 PATCH, 2/WEEK, TRANSDERMAL
     Route: 062
     Dates: start: 20030101
  2. PRILOSEC [Concomitant]

REACTIONS (5)
  - APPLICATION SITE DESQUAMATION [None]
  - APPLICATION SITE ERYTHEMA [None]
  - AUTOIMMUNE HEPATITIS [None]
  - CONSTIPATION [None]
  - DRY MOUTH [None]
